FAERS Safety Report 5321898-9 (Version None)
Quarter: 2007Q2

REPORT INFORMATION
  Report Type: 
  Country: None (occurrence: None)
  Receive Date: 20070510
  Receipt Date: 20070502
  Transmission Date: 20071010
  Serious: Yes (Hospitalization)
  Sender: FDA-Public Use
  Company Number: JP-MERCK-0704USA02012

PATIENT
  Age: 70 Year
  Sex: Female
  Weight: 35 kg

DRUGS (10)
  1. STROMECTOL [Suspect]
     Indication: ACARODERMATITIS
     Route: 048
     Dates: start: 20070206, end: 20070206
  2. STROMECTOL [Suspect]
     Route: 048
     Dates: start: 20070214, end: 20070214
  3. WARFARIN [Suspect]
     Indication: PROPHYLAXIS
     Route: 048
     Dates: start: 19990101, end: 20070306
  4. AMLODIN [Concomitant]
     Indication: HYPERTENSION
     Route: 048
     Dates: start: 19990101
  5. RYTHMODAN [Concomitant]
     Indication: ARRHYTHMIA
     Route: 048
     Dates: start: 19990101
  6. LANIRAPID [Concomitant]
     Indication: ARRHYTHMIA
     Route: 048
     Dates: start: 19990101
  7. GASMOTIN [Concomitant]
     Indication: NAUSEA
     Route: 048
     Dates: start: 19990101, end: 20061125
  8. MEVALOTIN [Concomitant]
     Indication: HYPERLIPIDAEMIA
     Route: 048
     Dates: start: 19990101
  9. ZANTAC [Concomitant]
     Indication: GASTRITIS
     Route: 048
     Dates: start: 19990101
  10. DEPAKENE [Concomitant]
     Indication: EPILEPSY
     Route: 048
     Dates: start: 19990101

REACTIONS (4)
  - COAGULATION TIME PROLONGED [None]
  - DRUG INTERACTION [None]
  - GASTROINTESTINAL DISORDER [None]
  - PRESCRIBED OVERDOSE [None]
